FAERS Safety Report 26040416 (Version 1)
Quarter: 2025Q4

REPORT INFORMATION
  Report Type: Report from Study
  Country: US (occurrence: US)
  Receive Date: 20251113
  Receipt Date: 20251113
  Transmission Date: 20260118
  Serious: Yes (Other)
  Sender: ALEXION PHARMACEUTICALS
  Company Number: US-AstraZeneca-CH-00988421A

PATIENT
  Sex: Female
  Weight: 75 kg

DRUGS (23)
  1. CAPIVASERTIB [Suspect]
     Active Substance: CAPIVASERTIB
     Indication: Breast cancer female
     Dosage: 160 MILLIGRAM, QD
     Dates: start: 20250728
  2. AMLODIPINE [Concomitant]
     Active Substance: AMLODIPINE BESYLATE
     Route: 065
  3. ASPIRIN [Concomitant]
     Active Substance: ASPIRIN
     Route: 065
  4. CHOLECALCIFEROL [Concomitant]
     Active Substance: CHOLECALCIFEROL
     Route: 065
  5. CRANBERRY [Concomitant]
     Active Substance: CRANBERRY
     Route: 065
  6. EPINEPHRINE [Concomitant]
     Active Substance: EPINEPHRINE
     Route: 065
  7. OMEPRAZOLE [Concomitant]
     Active Substance: OMEPRAZOLE
     Route: 065
  8. ESTRACE [Concomitant]
     Active Substance: ESTRADIOL
     Route: 065
  9. FENBENDAZOLE [Concomitant]
     Active Substance: FENBENDAZOLE
     Route: 065
  10. FULVESTRANT [Concomitant]
     Active Substance: FULVESTRANT
     Route: 065
  11. HYDROCODONE [Concomitant]
     Active Substance: HYDROCODONE
     Route: 065
  12. MAGNESIUM [Concomitant]
     Active Substance: MAGNESIUM
     Route: 065
  13. DIETARY SUPPLEMENT\HERBALS\MILK THISTLE [Concomitant]
     Active Substance: MILK THISTLE
     Route: 065
  14. NARCAN [Concomitant]
     Active Substance: NALOXONE HYDROCHLORIDE
     Route: 065
  15. OCUFLOX [Concomitant]
     Active Substance: OFLOXACIN
     Route: 065
  16. PROPAFENONE [Concomitant]
     Active Substance: PROPAFENONE
     Route: 065
  17. ZINC [Concomitant]
     Active Substance: ZINC
     Route: 065
  18. SELENIUM [Concomitant]
     Active Substance: SELENIUM
     Route: 065
  19. TIMOLOL [Concomitant]
     Active Substance: TIMOLOL
     Route: 065
  20. TRAMADOL [Concomitant]
     Active Substance: TRAMADOL
     Route: 065
  21. PROBIOTICS NOS [Concomitant]
     Active Substance: PROBIOTICS NOS
     Route: 065
  22. XALATAN [Concomitant]
     Active Substance: LATANOPROST
     Route: 065
  23. ZOFRAN [Concomitant]
     Active Substance: ONDANSETRON HYDROCHLORIDE
     Route: 065

REACTIONS (7)
  - Diarrhoea [Unknown]
  - Lip swelling [Unknown]
  - Rash [Unknown]
  - Arthralgia [Unknown]
  - Bone cancer [Unknown]
  - Pigmentation disorder [Unknown]
  - Skin exfoliation [Unknown]
